FAERS Safety Report 8961675 (Version 1)
Quarter: 2012Q4

REPORT INFORMATION
  Report Type: Report from Study
  Country: CA (occurrence: CA)
  Receive Date: 20121212
  Receipt Date: 20121212
  Transmission Date: 20130627
  Serious: Yes (Other)
  Sender: FDA-Public Use
  Company Number: CA-ROCHE-1165237

PATIENT
  Age: 52 Year
  Sex: Female
  Weight: 94.1 kg

DRUGS (6)
  1. XOLAIR [Suspect]
     Indication: ASTHMA
     Dosage: 375 mg, Q2W
     Route: 058
     Dates: start: 20060418
  2. VENTOLIN [Concomitant]
     Indication: PRODUCT USED FOR UNKNOWN INDICATION
  3. ADVAIR [Concomitant]
     Indication: PRODUCT USED FOR UNKNOWN INDICATION
  4. COMBIVENT [Concomitant]
     Indication: PRODUCT USED FOR UNKNOWN INDICATION
  5. SINGULAIR [Concomitant]
     Indication: PRODUCT USED FOR UNKNOWN INDICATION
  6. FLONASE [Concomitant]
     Indication: PRODUCT USED FOR UNKNOWN INDICATION

REACTIONS (33)
  - Asthmatic crisis [Recovering/Resolving]
  - Increased upper airway secretion [Unknown]
  - Dyspnoea [Unknown]
  - Upper-airway cough syndrome [Unknown]
  - Sinusitis [Unknown]
  - Arthritis [Unknown]
  - Pain [Unknown]
  - Blood pressure increased [Unknown]
  - Diarrhoea [Unknown]
  - Fibromyalgia [Unknown]
  - Bronchitis [Unknown]
  - Hyperhidrosis [Unknown]
  - Oral fungal infection [Unknown]
  - Dysphonia [Unknown]
  - Gastroenteritis [Unknown]
  - Vision blurred [Unknown]
  - Conjunctivitis [Unknown]
  - Eye infection [Unknown]
  - Productive cough [Unknown]
  - Sputum discoloured [Unknown]
  - Laryngitis [Unknown]
  - Candidiasis [Unknown]
  - Hypoaesthesia [Unknown]
  - Hot flush [Unknown]
  - Influenza [Unknown]
  - Fall [Unknown]
  - Haematoma [Unknown]
  - Joint injury [Unknown]
  - Gait disturbance [Unknown]
  - Insomnia [Unknown]
  - Fatigue [Unknown]
  - Cough [Unknown]
  - Myalgia [Unknown]
